FAERS Safety Report 13590930 (Version 1)
Quarter: 2017Q2

REPORT INFORMATION
  Report Type: Spontaneous
  Country: US (occurrence: US)
  Receive Date: 20170529
  Receipt Date: 20170529
  Transmission Date: 20170830
  Serious: No
  Sender: FDA-Public Use
  Company Number: US-ELI_LILLY_AND_COMPANY-US201705007843

PATIENT
  Sex: Male

DRUGS (9)
  1. HUMULIN R U-500 [Suspect]
     Active Substance: INSULIN HUMAN
     Dosage: 50 U, DAILY
     Route: 065
     Dates: start: 201510
  2. HUMULIN R U-500 [Suspect]
     Active Substance: INSULIN HUMAN
     Dosage: 70 U, EACH EVENING
     Route: 065
     Dates: start: 201705
  3. HUMULIN R U-500 [Suspect]
     Active Substance: INSULIN HUMAN
     Dosage: 70 U, EACH EVENING
     Route: 065
     Dates: start: 201510
  4. HUMULIN R [Suspect]
     Active Substance: INSULIN HUMAN
     Dosage: 50 U, DAILY
     Route: 065
     Dates: start: 201510
  5. HUMULIN R U-500 [Suspect]
     Active Substance: INSULIN HUMAN
     Dosage: 25 U, EACH MORNING
     Route: 065
     Dates: start: 201705
  6. HUMULIN R [Suspect]
     Active Substance: INSULIN HUMAN
     Indication: TYPE 2 DIABETES MELLITUS
     Dosage: 25 U, EACH MORNING
     Route: 065
     Dates: start: 201510
  7. HUMULIN R [Suspect]
     Active Substance: INSULIN HUMAN
     Dosage: 70 U, EACH EVENING
     Route: 065
     Dates: start: 201510
  8. HUMULIN R U-500 [Suspect]
     Active Substance: INSULIN HUMAN
     Indication: TYPE 2 DIABETES MELLITUS
     Dosage: 25 U, EACH MORNING
     Route: 065
     Dates: start: 201510
  9. HUMULIN R U-500 [Suspect]
     Active Substance: INSULIN HUMAN
     Dosage: 50 U, DAILY
     Route: 065
     Dates: start: 201705

REACTIONS (5)
  - Incorrect dose administered [Unknown]
  - Extra dose administered [Unknown]
  - Blood glucose increased [Unknown]
  - Blood glucose abnormal [Unknown]
  - Blood glucose decreased [Unknown]
